FAERS Safety Report 22231005 (Version 6)
Quarter: 2023Q4

REPORT INFORMATION
  Report Type: Spontaneous
  Country: CA (occurrence: CA)
  Receive Date: 20230420
  Receipt Date: 20231025
  Transmission Date: 20240110
  Serious: Yes (Other)
  Sender: FDA-Public Use
  Company Number: CA-CELLTRION INC.-2023CA006199

PATIENT

DRUGS (11)
  1. INFLECTRA [Suspect]
     Active Substance: INFLIXIMAB-DYYB
     Indication: Colitis ulcerative
     Dosage: INDUCTION W0,2,6 THEN MAINTENANCE Q8 WEEKS
     Route: 042
     Dates: start: 20230206, end: 20230317
  2. INFLECTRA [Suspect]
     Active Substance: INFLIXIMAB-DYYB
     Dosage: INDUCTION W0,2,6 THEN MAINTENANCE Q8 WEEKS
     Route: 042
     Dates: start: 20230221
  3. INFLECTRA [Suspect]
     Active Substance: INFLIXIMAB-DYYB
     Dosage: INDUCTION W0,2,6 THEN MAINTENANCE Q8 WEEKS (350MG, Q8 WEEKS)
     Route: 042
     Dates: start: 20230317
  4. INFLECTRA [Suspect]
     Active Substance: INFLIXIMAB-DYYB
     Dosage: RESCUE DOSE (700 MG, IN 2 WEEKS)
     Route: 042
     Dates: start: 20230414, end: 20230414
  5. INFLECTRA [Suspect]
     Active Substance: INFLIXIMAB-DYYB
     Dosage: RESCUE DOSE
     Route: 042
     Dates: start: 20230414, end: 20230417
  6. INFLECTRA [Suspect]
     Active Substance: INFLIXIMAB-DYYB
     Dosage: EVERY 4 WEEKS (700 MG, AFTER 3 WEEKS AND 5 DAYS)
     Route: 042
     Dates: start: 20230510
  7. INFLECTRA [Suspect]
     Active Substance: INFLIXIMAB-DYYB
     Dosage: EVERY 4 WEEKS
     Route: 042
     Dates: start: 20230725
  8. INFLECTRA [Suspect]
     Active Substance: INFLIXIMAB-DYYB
     Dosage: EVERY 4 WEEKS (660 MG)
     Route: 042
     Dates: start: 20230828
  9. INFLECTRA [Suspect]
     Active Substance: INFLIXIMAB-DYYB
     Dosage: EVERY 4 WEEKS (692 MG)
     Route: 042
     Dates: start: 20230925
  10. PREDNISONE [Concomitant]
     Active Substance: PREDNISONE
     Dosage: UNK
  11. SALOFALK [Concomitant]
     Dosage: UNK

REACTIONS (5)
  - Condition aggravated [Recovered/Resolved]
  - Haemoglobin decreased [Not Recovered/Not Resolved]
  - Off label use [Unknown]
  - Off label use [Unknown]
  - Intentional product use issue [Unknown]

NARRATIVE: CASE EVENT DATE: 20230101
